FAERS Safety Report 15298717 (Version 1)
Quarter: 2018Q3

REPORT INFORMATION
  Report Type: Spontaneous
  Country: US (occurrence: US)
  Receive Date: 20180820
  Receipt Date: 20180820
  Transmission Date: 20181010
  Serious: No
  Sender: FDA-Public Use
  Company Number: US-ASTRAZENECA-2018SE96299

PATIENT
  Sex: Female
  Weight: 83.9 kg

DRUGS (3)
  1. BYETTA [Suspect]
     Active Substance: EXENATIDE
     Indication: TYPE 2 DIABETES MELLITUS
     Route: 058
  2. LISINOPRIL. [Suspect]
     Active Substance: LISINOPRIL
     Indication: HYPERTENSION
     Dosage: 10?12.5 MG ORAL EVERY DAY.
     Route: 048
  3. BYETTA [Suspect]
     Active Substance: EXENATIDE
     Indication: TYPE 2 DIABETES MELLITUS
     Route: 058

REACTIONS (6)
  - Weight decreased [Unknown]
  - Back pain [Unknown]
  - Drug dose omission by device [Unknown]
  - Food refusal [Unknown]
  - Eating disorder [Unknown]
  - Device issue [Unknown]
